FAERS Safety Report 6095178-0 (Version None)
Quarter: 2009Q1

REPORT INFORMATION
  Report Type: 
  Country: None (occurrence: None)
  Receive Date: 20090227
  Receipt Date: 20080206
  Transmission Date: 20090719
  Serious: No
  Sender: FDA-Public Use
  Company Number: A0707826A

PATIENT
  Age: 52 Year
  Sex: Male

DRUGS (5)
  1. LAMICTAL [Suspect]
     Indication: BIPOLAR DISORDER
     Dosage: 150MG PER DAY
     Route: 048
     Dates: start: 20071101
  2. CYMBALTA [Concomitant]
  3. ATENOLOL [Concomitant]
  4. NEXIUM [Concomitant]
  5. AMBIEN [Concomitant]

REACTIONS (2)
  - ASTHENIA [None]
  - FATIGUE [None]
